FAERS Safety Report 21192655 (Version 1)
Quarter: 2022Q3

REPORT INFORMATION
  Report Type: Spontaneous
  Country: CN (occurrence: CN)
  Receive Date: 20220810
  Receipt Date: 20220810
  Transmission Date: 20221026
  Serious: Yes (Hospitalization)
  Sender: FDA-Public Use
  Company Number: CN-STRIDES ARCOLAB LIMITED-2022SP010067

PATIENT
  Age: 47 Year
  Sex: Male

DRUGS (5)
  1. OXYCODONE [Interacting]
     Active Substance: OXYCODONE
     Indication: Pain
     Dosage: 10 MILLIGRAM, BID, TABLET
     Route: 048
     Dates: start: 201911
  2. OSIMERTINIB MESYLATE [Interacting]
     Active Substance: OSIMERTINIB MESYLATE
     Indication: Lung adenocarcinoma stage IV
     Dosage: 80 MILLIGRAM PER DAY
     Route: 065
     Dates: start: 20191114
  3. ICOTINIB [Concomitant]
     Active Substance: ICOTINIB
     Indication: Lung adenocarcinoma stage IV
     Dosage: 125 MILLIGRAM, TID
     Route: 065
     Dates: start: 20180628
  4. PEMETREXED [Concomitant]
     Active Substance: PEMETREXED
     Indication: Lung adenocarcinoma stage IV
     Dosage: 125 MILLIGRAM, TID (12 CYCLES AS CONSOLIDATION THERAPY)
     Route: 065
     Dates: start: 20180904, end: 20190925
  5. IBANDRONATE SODIUM [Concomitant]
     Active Substance: IBANDRONATE SODIUM
     Indication: Lung adenocarcinoma stage IV
     Dosage: 4 MILLIGRAM, UNKNOWN
     Route: 042
     Dates: start: 202001

REACTIONS (3)
  - Neurotoxicity [Recovered/Resolved]
  - Epilepsy [Recovered/Resolved]
  - Drug interaction [Unknown]
